FAERS Safety Report 14821048 (Version 1)
Quarter: 2018Q2

REPORT INFORMATION
  Report Type: Spontaneous
  Country: US (occurrence: US)
  Receive Date: 20180417
  Receipt Date: 20180417
  Transmission Date: 20180711
  Serious: No
  Sender: FDA-Public Use
  Company Number: None

PATIENT
  Age: 53 Year
  Sex: Female

DRUGS (1)
  1. EPCLUSA [Suspect]
     Active Substance: SOFOSBUVIR\VELPATASVIR
     Dosage: 1 TABLET (400MG/100MG QDAY ORAL
     Route: 048

REACTIONS (2)
  - Constipation [None]
  - Faeces hard [None]

NARRATIVE: CASE EVENT DATE: 20180330
